FAERS Safety Report 19094290 (Version 1)
Quarter: 2021Q2

REPORT INFORMATION
  Report Type: Report from Study
  Country: CA (occurrence: CA)
  Receive Date: 20210405
  Receipt Date: 20210405
  Transmission Date: 20210717
  Serious: Yes (Death, Hospitalization)
  Sender: FDA-Public Use
  Company Number: CA-NOVOPROD-790931

PATIENT
  Age: 80 Year
  Sex: Male

DRUGS (2)
  1. OCTREOTIDE. [Concomitant]
     Active Substance: OCTREOTIDE
  2. NIASTASE [Suspect]
     Active Substance: COAGULATION FACTOR VIIA RECOMBINANT HUMAN
     Indication: CONGENITAL THROMBOCYTE DISORDER
     Dosage: 7MG (90MCG/KG), DAILY TO Q2 DAYS
     Route: 065
     Dates: start: 20200929

REACTIONS (13)
  - Ear discomfort [Unknown]
  - Decreased appetite [Unknown]
  - Haemoglobin decreased [Unknown]
  - Dizziness [Recovering/Resolving]
  - Urinary tract infection [Recovering/Resolving]
  - Gingival bleeding [Not Recovered/Not Resolved]
  - Nausea [Recovering/Resolving]
  - Drug effect less than expected [Unknown]
  - Vomiting [Recovering/Resolving]
  - Gastric haemorrhage [Unknown]
  - Death [Fatal]
  - Fatigue [Unknown]
  - Blood pressure systolic increased [Unknown]

NARRATIVE: CASE EVENT DATE: 202103
